FAERS Safety Report 7751191-6 (Version None)
Quarter: 2011Q3

REPORT INFORMATION
  Report Type: 
  Country: None (occurrence: None)
  Receive Date: 20110914
  Receipt Date: 20080815
  Transmission Date: 20111222
  Serious: Yes (Other)
  Sender: FDA-Public Use
  Company Number: PHHY2008NL37317

PATIENT
  Sex: Female

DRUGS (3)
  1. SANDOSTATIN LAR [Suspect]
     Indication: MULTIPLE ENDOCRINE ADENOMATOSIS
     Dosage: 20MG, ADMINISTERED ONCE PER 2 WEEKS.
     Dates: start: 20050825, end: 20100802
  2. SANDOSTATIN LAR [Suspect]
     Indication: NEUROENDOCRINE TUMOUR
     Dosage: 40 MG, ONCE PER 4 WEEKS
     Dates: start: 20100929
  3. CHEMOTHERAPEUTICS NOS [Concomitant]

REACTIONS (2)
  - MALAISE [None]
  - INCORRECT DRUG ADMINISTRATION DURATION [None]
